FAERS Safety Report 8435680-7 (Version None)
Quarter: 2012Q2

REPORT INFORMATION
  Report Type: 
  Country: None (occurrence: None)
  Receive Date: 20120614
  Receipt Date: 20120611
  Transmission Date: 20120825
  Serious: Yes (Life-Threatening, Hospitalization, Other)
  Sender: FDA-Public Use
  Company Number: CH-PFIZER INC-2012113850

PATIENT
  Age: 42 Year
  Sex: Male

DRUGS (5)
  1. VFEND [Suspect]
     Indication: BRONCHOPULMONARY ASPERGILLOSIS
     Dosage: 350 MG, 2X/DAY
     Route: 048
     Dates: start: 20120117, end: 20120411
  2. BACTRIM [Suspect]
     Dosage: 160 MG, THREE PER ONE WEEK
     Route: 048
     Dates: start: 20111201
  3. CIPROFLOXACIN [Concomitant]
     Dosage: 500 MG, 1X/DAY
     Route: 048
     Dates: start: 20120101
  4. CODEINE [Concomitant]
     Dosage: 50 MG, 4X/DAY
     Route: 048
     Dates: start: 20120101
  5. PREDNISONE [Concomitant]
     Dosage: 25 MG, 1X/DAY
     Route: 048
     Dates: start: 20111201

REACTIONS (3)
  - CHOLANGITIS ACUTE [None]
  - CHOLELITHIASIS [None]
  - SHOCK HAEMORRHAGIC [None]
